FAERS Safety Report 15000249 (Version 2)
Quarter: 2018Q2

REPORT INFORMATION
  Report Type: Spontaneous
  Country: NL (occurrence: NL)
  Receive Date: 20180612
  Receipt Date: 20180629
  Transmission Date: 20180711
  Serious: Yes (Other)
  Sender: FDA-Public Use
  Company Number: NL-AUROBINDO-AUR-APL-2018-031132

PATIENT
  Age: 68 Year
  Sex: Female
  Weight: 56 kg

DRUGS (3)
  1. AMITRIPTYLIN [Concomitant]
     Active Substance: AMITRIPTYLINE
     Indication: PRODUCT USED FOR UNKNOWN INDICATION
     Dosage: UNK
     Route: 016
  2. OXYCODON HCL AUROBINDO 10 MG, CAPSULES HARD [Suspect]
     Active Substance: OXYCODONE HYDROCHLORIDE
     Indication: HERPES ZOSTER
     Dosage: 1 DOSAGE FORM, DAILY
     Route: 065
  3. ECHINACEA                          /01323501/ [Concomitant]
     Active Substance: ECHINACEA PURPUREA
     Indication: PRODUCT USED FOR UNKNOWN INDICATION
     Dosage: UNK
     Route: 016

REACTIONS (9)
  - Eating disorder [Recovered/Resolved]
  - Drug ineffective [Unknown]
  - Weight decreased [Recovered/Resolved]
  - Vomiting [Recovered/Resolved]
  - Helicobacter infection [Unknown]
  - Pollakiuria [Recovered/Resolved]
  - Feeling abnormal [Recovered/Resolved]
  - Hunger [Not Recovered/Not Resolved]
  - Diarrhoea [Recovered/Resolved]
